FAERS Safety Report 7771771-1 (Version None)
Quarter: 2011Q3

REPORT INFORMATION
  Report Type: 
  Country: None (occurrence: None)
  Receive Date: 20110922
  Receipt Date: 20110921
  Transmission Date: 20111222
  Serious: Yes (Other)
  Sender: FDA-Public Use
  Company Number: DE-TEVA-299150GER

PATIENT
  Age: 28 Year
  Sex: Male

DRUGS (3)
  1. ETOPOSIDE [Concomitant]
     Indication: MEDULLOBLASTOMA RECURRENT
  2. DEXAMETHASONE [Suspect]
     Indication: MEDULLOBLASTOMA RECURRENT
  3. TEMOZOLOMIDE [Suspect]
     Indication: MEDULLOBLASTOMA RECURRENT

REACTIONS (5)
  - PNEUMOCYSTIS JIROVECI INFECTION [None]
  - PNEUMONIA STAPHYLOCOCCAL [None]
  - SUBCUTANEOUS ABSCESS [None]
  - ACUTE RESPIRATORY DISTRESS SYNDROME [None]
  - ASPERGILLOSIS [None]
